FAERS Safety Report 14263878 (Version 4)
Quarter: 2017Q4

REPORT INFORMATION
  Report Type: Spontaneous
  Country: DE (occurrence: FR)
  Receive Date: 20171208
  Receipt Date: 20171209
  Transmission Date: 20180321
  Serious: Yes (Disabling)
  Sender: FDA-Public Use
  Company Number: FR-MERZ NORTH AMERICA, INC.-17MRZ-00401

PATIENT
  Sex: Female

DRUGS (3)
  1. ASCLERA [Suspect]
     Active Substance: POLIDOCANOL
     Indication: SCLEROTHERAPY
     Dosage: UNK DOSE
     Route: 065
     Dates: start: 199712, end: 199712
  2. SCLEREMO [Suspect]
     Active Substance: CHROMIC POTASSIUM SULFATE
     Indication: VARICOSE VEIN
     Dosage: UNKNOWN DOSE
     Route: 065
  3. TROMBOVAR [Suspect]
     Active Substance: SODIUM TETRADECYL SULFATE
     Indication: VARICOSE VEIN
     Dosage: UNKNOWN DOSE
     Route: 065

REACTIONS (1)
  - Pain in extremity [Not Recovered/Not Resolved]

NARRATIVE: CASE EVENT DATE: 199712
